FAERS Safety Report 9455510 (Version 2)
Quarter: 2013Q3

REPORT INFORMATION
  Report Type: Spontaneous
  Country: US (occurrence: US)
  Receive Date: 20130813
  Receipt Date: 20130905
  Transmission Date: 20140515
  Serious: Yes (Other)
  Sender: FDA-Public Use
  Company Number: US-BAYER-2013-095904

PATIENT
  Age: 35 Year
  Sex: Female
  Weight: 72.11 kg

DRUGS (1)
  1. MIRENA [Suspect]
     Indication: CONTRACEPTION
     Dosage: 20 MCG/24HR, CONT
     Route: 015
     Dates: start: 20061009, end: 20130820

REACTIONS (6)
  - Embedded device [Recovering/Resolving]
  - Device misuse [None]
  - Pelvic adhesions [Recovering/Resolving]
  - Complication of device removal [None]
  - Device dislocation [Recovering/Resolving]
  - Device dislocation [Recovering/Resolving]
